FAERS Safety Report 10062302 (Version 2)
Quarter: 2014Q2

REPORT INFORMATION
  Report Type: Spontaneous
  Country: HU (occurrence: HU)
  Receive Date: 20140407
  Receipt Date: 20140410
  Transmission Date: 20141212
  Serious: Yes (Death, Hospitalization, Other)
  Sender: FDA-Public Use
  Company Number: HU-ASTRAZENECA-2014SE23744

PATIENT
  Age: 878 Month
  Sex: Male

DRUGS (1)
  1. SYMBICORT FORTE TURBUHALER [Suspect]
     Indication: CHRONIC OBSTRUCTIVE PULMONARY DISEASE
     Dosage: 9/320 MCG/DOSE, ONE INHALATION / TWO TIMES PER DAY
     Route: 055
     Dates: start: 200704, end: 20130325

REACTIONS (3)
  - Disseminated tuberculosis [Fatal]
  - Femur fracture [Unknown]
  - Disease progression [Fatal]
